FAERS Safety Report 5926776-X (Version None)
Quarter: 2008Q4

REPORT INFORMATION
  Report Type: 
  Country: None (occurrence: None)
  Receive Date: 20081022
  Receipt Date: 20081017
  Transmission Date: 20090506
  Serious: Yes (Hospitalization)
  Sender: FDA-Public Use
  Company Number: FR-GENENTECH-257895

PATIENT
  Sex: Female

DRUGS (1)
  1. RAPTIVA [Suspect]
     Indication: PSORIASIS
     Dosage: 1 MG/KG, UNK
     Route: 058
     Dates: start: 20071201

REACTIONS (3)
  - DRUG INEFFECTIVE [None]
  - OCULAR MYASTHENIA [None]
  - THORACIC OUTLET SYNDROME [None]
